FAERS Safety Report 5634608-2 (Version None)
Quarter: 2008Q1

REPORT INFORMATION
  Report Type: 
  Country: None (occurrence: None)
  Receive Date: 20080131
  Receipt Date: 20071108
  Transmission Date: 20080703
  Serious: No
  Sender: FDA-Public Use
  Company Number: 2007-US-000263

PATIENT
  Age: 13 Year
  Sex: Female
  Weight: 37.1 kg

DRUGS (4)
  1. INCRELEX [Suspect]
     Indication: BODY HEIGHT BELOW NORMAL
     Dosage: SEE IMAGE
     Route: 058
     Dates: start: 20070823
  2. INCRELEX [Suspect]
     Indication: BODY HEIGHT BELOW NORMAL
     Dosage: SEE IMAGE
     Route: 058
     Dates: start: 20070906
  3. LUPRON DEPOT [Suspect]
     Indication: PRECOCIOUS PUBERTY
     Dosage: 11.25 MG, Q4WEEKS, INTRAMUSCULAR
     Route: 030
     Dates: start: 20070822
  4. FOCALIN [Concomitant]

REACTIONS (3)
  - MEMORY IMPAIRMENT [None]
  - MOOD SWINGS [None]
  - NERVOUSNESS [None]
